FAERS Safety Report 9791199 (Version 2)
Quarter: 2014Q1

REPORT INFORMATION
  Report Type: Spontaneous
  Country: ES (occurrence: ES)
  Receive Date: 20131231
  Receipt Date: 20140110
  Transmission Date: 20141002
  Serious: Yes (Disabling)
  Sender: FDA-Public Use
  Company Number: ES-009507513-1312ESP010674

PATIENT
  Age: 54 Year
  Sex: Female

DRUGS (1)
  1. FOSAVANCE [Suspect]
     Indication: OSTEOPOROSIS
     Dosage: 70 MG/2.800 UI, 70 MG QW
     Route: 048
     Dates: start: 2003, end: 2009

REACTIONS (2)
  - Movement disorder [Not Recovered/Not Resolved]
  - Head titubation [Not Recovered/Not Resolved]
